FAERS Safety Report 23213965 (Version 1)
Quarter: 2023Q4

REPORT INFORMATION
  Report Type: Spontaneous
  Country: US (occurrence: None)
  Receive Date: 20231121
  Receipt Date: 20231121
  Transmission Date: 20240110
  Serious: Yes (Hospitalization)
  Sender: FDA-Public Use
  Company Number: None

PATIENT
  Age: 30 Year
  Sex: Female
  Weight: 72.5 kg

DRUGS (2)
  1. RITUXIMAB-PVVR [Suspect]
     Active Substance: RITUXIMAB-PVVR
     Indication: Non-Hodgkin^s lymphoma
     Route: 042
     Dates: start: 20231006
  2. TAFASITAMAB-CXIX [Concomitant]
     Active Substance: TAFASITAMAB-CXIX

REACTIONS (7)
  - Chills [None]
  - Flushing [None]
  - Pyrexia [None]
  - Hypotension [None]
  - Tachycardia [None]
  - Vomiting [None]
  - Infusion related reaction [None]

NARRATIVE: CASE EVENT DATE: 20231006
